FAERS Safety Report 10248537 (Version 1)
Quarter: 2014Q2

REPORT INFORMATION
  Report Type: Spontaneous
  Country: US (occurrence: None)
  Receive Date: 20140617
  Receipt Date: 20140617
  Transmission Date: 20141212
  Serious: No
  Sender: FDA-Public Use
  Company Number: None

PATIENT
  Age: 70 Year
  Sex: Male

DRUGS (2)
  1. OLYSIO [Suspect]
     Route: 048
     Dates: start: 20140528, end: 20140616
  2. SOVALDI 400MG GILEAD SCIENCES [Suspect]
     Route: 048
     Dates: start: 20140528, end: 20140616

REACTIONS (1)
  - Blood pressure increased [None]
